FAERS Safety Report 7071403-4 (Version None)
Quarter: 2010Q4

REPORT INFORMATION
  Report Type: 
  Country: None (occurrence: None)
  Receive Date: 20101029
  Receipt Date: 20091211
  Transmission Date: 20110411
  Serious: No
  Sender: FDA-Public Use
  Company Number: A0767952A

PATIENT
  Age: 50 Year
  Sex: Male

DRUGS (7)
  1. ADVAIR DISKUS 100/50 [Suspect]
     Indication: ASTHMA
     Dosage: 1PUFF TWICE PER DAY
     Route: 055
     Dates: start: 20030101
  2. PREVACID [Concomitant]
  3. AMBIEN [Concomitant]
  4. REQUIP [Concomitant]
  5. PRISTIQ [Concomitant]
  6. ALBUTEROL [Concomitant]
  7. OXYCODONE [Concomitant]

REACTIONS (3)
  - DRUG INEFFECTIVE [None]
  - ILL-DEFINED DISORDER [None]
  - PRODUCT QUALITY ISSUE [None]
